FAERS Safety Report 4417365-7 (Version None)
Quarter: 2004Q3

REPORT INFORMATION
  Report Type: 
  Country: None (occurrence: None)
  Receive Date: 20040702
  Receipt Date: 20031110
  Transmission Date: 20050211
  Serious: Yes (Hospitalization, Other)
  Sender: FDA-Public Use
  Company Number: 2003117567

PATIENT
  Sex: Male
  Weight: 105.2345 kg

DRUGS (3)
  1. ACCUPRIL [Suspect]
     Indication: HYPERTENSION
     Dosage: 60 MG (BID), ORAL
     Route: 048
  2. SOTALOL HCL [Suspect]
     Indication: HEART RATE IRREGULAR
     Dosage: UNK
     Route: 065
     Dates: end: 20031109
  3. HYDROCHLOROTHIAZIDE [Concomitant]

REACTIONS (8)
  - BLOOD PRESSURE FLUCTUATION [None]
  - DIZZINESS [None]
  - HEART RATE IRREGULAR [None]
  - HYPERTENSION [None]
  - INJURY [None]
  - MUSCLE TWITCHING [None]
  - SYNCOPE [None]
  - URINE OUTPUT INCREASED [None]
